FAERS Safety Report 18009133 (Version 1)
Quarter: 2020Q3

REPORT INFORMATION
  Report Type: Spontaneous
  Country: US (occurrence: US)
  Receive Date: 20200710
  Receipt Date: 20200710
  Transmission Date: 20201103
  Serious: Yes (Other)
  Sender: FDA-Public Use
  Company Number: US-SAOL THERAPEUTICS-2019SAO00306

PATIENT
  Sex: Female
  Weight: 18.14 kg

DRUGS (2)
  1. LIORESAL [Suspect]
     Active Substance: BACLOFEN
     Dosage: 500 ?G, \DAY
     Route: 037
  2. LIORESAL [Suspect]
     Active Substance: BACLOFEN
     Indication: MUSCLE SPASTICITY
     Dosage: 600 ?G, \DAY
     Route: 037

REACTIONS (11)
  - Nausea [Unknown]
  - Mydriasis [Unknown]
  - Speech disorder [Unknown]
  - Vomiting [Unknown]
  - Unevaluable event [Unknown]
  - Seizure [Unknown]
  - Device infusion issue [Unknown]
  - Unresponsive to stimuli [Not Recovered/Not Resolved]
  - Lethargy [Unknown]
  - Movement disorder [Unknown]
  - Overdose [Not Recovered/Not Resolved]

NARRATIVE: CASE EVENT DATE: 2019
